FAERS Safety Report 4964922-5 (Version None)
Quarter: 2006Q1

REPORT INFORMATION
  Report Type: 
  Country: None (occurrence: None)
  Receive Date: 20060207
  Receipt Date: 20050302
  Transmission Date: 20060701
  Serious: No
  Sender: FDA-Public Use
  Company Number: 241821

PATIENT
  Age: 68 Year
  Sex: Male
  Weight: 90.7 kg

DRUGS (3)
  1. NOVOLOG [Suspect]
     Indication: INSULIN-REQUIRING TYPE II DIABETES MELLITUS
     Dosage: SLIDING SCALE, TID, SUBCUTANEOUS
     Route: 058
     Dates: start: 20031101
  2. HUMULIN 70/30 [Concomitant]
  3. DISPOSABLE NEEDLE NOS [Concomitant]

REACTIONS (1)
  - BLOOD GLUCOSE INCREASED [None]
